FAERS Safety Report 4896994-0 (Version None)
Quarter: 2006Q1

REPORT INFORMATION
  Report Type: 
  Country: None (occurrence: None)
  Receive Date: 20060127
  Receipt Date: 20060123
  Transmission Date: 20060701
  Serious: Yes (Other)
  Sender: FDA-Public Use
  Company Number: 200610257GDS

PATIENT
  Age: 82 Year
  Sex: Male
  Weight: 75 kg

DRUGS (3)
  1. MOXIFLOXACIN HCL [Suspect]
     Indication: BRONCHITIS ACUTE
     Dosage: 400 MG, TOTAL DAILY, ORAL
     Route: 048
     Dates: start: 20060113, end: 20060116
  2. MUCOVITAL [Concomitant]
  3. EFFERALGAN [Concomitant]

REACTIONS (2)
  - DEMENTIA [None]
  - HALLUCINATION [None]
